FAERS Safety Report 24361736 (Version 1)
Quarter: 2024Q3

REPORT INFORMATION
  Report Type: Spontaneous
  Country: US (occurrence: US)
  Receive Date: 20240925
  Receipt Date: 20240925
  Transmission Date: 20241016
  Serious: No
  Sender: ELI LILLY AND CO
  Company Number: US-ELI_LILLY_AND_COMPANY-US202409014313

PATIENT
  Sex: Female

DRUGS (3)
  1. VERZENIO [Suspect]
     Active Substance: ABEMACICLIB
     Indication: Breast cancer
     Dosage: 150 MG, UNKNOWN
     Route: 065
  2. VERZENIO [Suspect]
     Active Substance: ABEMACICLIB
     Dosage: UNK UNK, UNKNOWN
     Route: 065
  3. TAMOXIFEN [Suspect]
     Active Substance: TAMOXIFEN
     Indication: Breast cancer
     Dosage: UNK UNK, UNKNOWN
     Route: 065

REACTIONS (3)
  - Neutropenia [Recovered/Resolved]
  - Fatigue [Recovered/Resolved]
  - Nausea [Recovered/Resolved]

NARRATIVE: CASE EVENT DATE: 20240921
